FAERS Safety Report 7458766-2 (Version None)
Quarter: 2011Q2

REPORT INFORMATION
  Report Type: 
  Country: None (occurrence: None)
  Receive Date: 20110504
  Receipt Date: 20110429
  Transmission Date: 20111010
  Serious: Yes (Other)
  Sender: FDA-Public Use
  Company Number: US-PFIZER INC-2011093147

PATIENT
  Sex: Female

DRUGS (4)
  1. MEDROL [Suspect]
     Indication: ASTHMA
     Dosage: 4 MG, DAILY
     Route: 048
  2. ALAVERT [Concomitant]
     Indication: ASTHMA
     Dosage: UNK
  3. MONTELUKAST SODIUM [Concomitant]
     Indication: ASTHMA
     Dosage: UNK
  4. THEO-DUR [Concomitant]
     Indication: ASTHMA
     Dosage: 200 MG, UNK

REACTIONS (4)
  - UPPER RESPIRATORY TRACT INFECTION [None]
  - PNEUMONIA [None]
  - BLOOD GLUCOSE INCREASED [None]
  - BLOOD CHOLESTEROL INCREASED [None]
